FAERS Safety Report 5413663-9 (Version None)
Quarter: 2007Q3

REPORT INFORMATION
  Report Type: 
  Country: None (occurrence: None)
  Receive Date: 20070814
  Receipt Date: 20070808
  Transmission Date: 20080115
  Serious: Yes (Hospitalization, Disabling)
  Sender: FDA-Public Use
  Company Number: PHNU2006DE00516

PATIENT
  Age: 57 Year
  Sex: Female

DRUGS (5)
  1. ZOMETA [Suspect]
     Indication: BREAST CANCER METASTATIC
     Dosage: 4 MG, QMO
     Route: 042
     Dates: start: 20030101, end: 20050801
  2. CHEMOTHERAPEUTICS,OTHER [Concomitant]
     Dates: start: 20040101
  3. AREDIA [Suspect]
     Indication: BREAST CANCER METASTATIC
     Dosage: 90 MG, QMO
     Route: 065
     Dates: start: 19950101, end: 20030101
  4. BONDRONAT [Suspect]
     Dosage: 6 MG, QMO
     Dates: start: 20050806
  5. SOLU-DECORTIN [Concomitant]
     Dosage: 20 MG, QD
     Route: 065

REACTIONS (10)
  - BIOPSY BONE ABNORMAL [None]
  - BONE DISORDER [None]
  - HYPOAESTHESIA [None]
  - ORAL SURGERY [None]
  - OSTEOMYELITIS [None]
  - OSTEONECROSIS [None]
  - OSTEOTOMY [None]
  - PAIN [None]
  - SCINTIGRAPHY [None]
  - TOOTH EXTRACTION [None]
